FAERS Safety Report 12256973 (Version 1)
Quarter: 2016Q2

REPORT INFORMATION
  Report Type: Spontaneous
  Country: CA (occurrence: CA)
  Receive Date: 20160412
  Receipt Date: 20160412
  Transmission Date: 20160815
  Serious: Yes (Life-Threatening, Hospitalization)
  Sender: FDA-Public Use
  Company Number: CA-BAYER-2016-063382

PATIENT
  Age: 58 Year
  Sex: Female
  Weight: 77.98 kg

DRUGS (1)
  1. GADOVIST [Suspect]
     Active Substance: GADOBUTROL
     Indication: SCAN WITH CONTRAST
     Dosage: 7.0 ML, ONCE
     Route: 042

REACTIONS (6)
  - Dyspnoea [Unknown]
  - Erythema [Unknown]
  - Urticaria [Unknown]
  - Dysphagia [Unknown]
  - Cough [Unknown]
  - Flushing [Unknown]
